FAERS Safety Report 7865163-4 (Version None)
Quarter: 2011Q4

REPORT INFORMATION
  Report Type: 
  Country: None (occurrence: None)
  Receive Date: 20111028
  Receipt Date: 20101025
  Transmission Date: 20120403
  Serious: No
  Sender: FDA-Public Use
  Company Number: US-GLAXOSMITHKLINE-A0888639A

PATIENT
  Age: 64 Year
  Sex: Male

DRUGS (9)
  1. VITAMIN TAB [Concomitant]
  2. CARDURA [Concomitant]
  3. ADVAIR DISKUS 100/50 [Suspect]
     Indication: ASTHMA
     Route: 055
     Dates: start: 20050101
  4. MAXAIR [Concomitant]
  5. SINGULAIR [Concomitant]
  6. ZOCOR [Concomitant]
  7. METFORMIN HCL [Concomitant]
  8. BENAZEPRIL HYDROCHLORIDE [Concomitant]
  9. FLOMAX [Concomitant]

REACTIONS (2)
  - ILL-DEFINED DISORDER [None]
  - DRUG INEFFECTIVE [None]
